FAERS Safety Report 9788318 (Version 1)
Quarter: 2013Q4

REPORT INFORMATION
  Report Type: Spontaneous
  Country: IE (occurrence: IE)
  Receive Date: 20131230
  Receipt Date: 20131230
  Transmission Date: 20140711
  Serious: Yes (Other)
  Sender: FDA-Public Use
  Company Number: IE-009507513-1312IRL011242

PATIENT
  Sex: 0

DRUGS (1)
  1. FOSAMAX [Suspect]
     Dosage: 70 MG, QW
     Route: 048

REACTIONS (4)
  - Lung neoplasm malignant [Unknown]
  - Cystic fibrosis [Unknown]
  - Wrong technique in drug usage process [Unknown]
  - Incorrect route of drug administration [Unknown]
